FAERS Safety Report 10004172 (Version 2)
Quarter: 2014Q1

REPORT INFORMATION
  Report Type: Report from Study
  Country: IL (occurrence: IL)
  Receive Date: 20140312
  Receipt Date: 20140312
  Transmission Date: 20141002
  Serious: Yes (Hospitalization)
  Sender: FDA-Public Use
  Company Number: IL-JNJFOC-20130814759

PATIENT
  Age: 71 Year
  Sex: Male
  Weight: 67.7 kg

DRUGS (5)
  1. IBRUTINIB [Suspect]
     Indication: CHRONIC LYMPHOCYTIC LEUKAEMIA
     Route: 048
     Dates: start: 20130726, end: 20130818
  2. IBRUTINIB [Suspect]
     Indication: CHRONIC LYMPHOCYTIC LEUKAEMIA
     Route: 048
     Dates: start: 20130829
  3. ZYLOL [Concomitant]
     Indication: HYPERURICAEMIA
     Route: 048
     Dates: start: 20130805
  4. CALCILESS [Concomitant]
     Indication: HYPERCALCAEMIA
     Route: 048
  5. EVITOL [Concomitant]

REACTIONS (1)
  - Traumatic haematoma [Recovered/Resolved]
